FAERS Safety Report 9054602 (Version 1)
Quarter: 2013Q1

REPORT INFORMATION
  Report Type: Spontaneous
  Country: JP (occurrence: JP)
  Receive Date: 20130208
  Receipt Date: 20130208
  Transmission Date: 20140127
  Serious: Yes (Death, Life-Threatening, Hospitalization, Other)
  Sender: FDA-Public Use
  Company Number: JP-B.I. PHARMACEUTICALS,INC./RIDGEFIELD-2013-BI-00800NB

PATIENT
  Age: 60 None
  Sex: Male
  Weight: 62.3 kg

DRUGS (13)
  1. PRADAXA [Suspect]
     Indication: CEREBROVASCULAR ACCIDENT PROPHYLAXIS
     Dosage: 220 MG
     Route: 048
     Dates: start: 20121203, end: 20121219
  2. BAYASPIRIN [Suspect]
     Indication: CEREBRAL INFARCTION
     Dosage: 100 MG
     Route: 048
     Dates: start: 20121203, end: 20121219
  3. HANP [Concomitant]
     Indication: CARDIAC FAILURE CONGESTIVE
     Dosage: 2160 MCG
     Route: 042
     Dates: start: 20121129, end: 20121204
  4. CRAVIT [Concomitant]
     Indication: INFECTION PROPHYLAXIS
     Dosage: 500 MG
     Route: 048
     Dates: start: 20121201, end: 20121212
  5. PARIET [Concomitant]
     Indication: GASTROOESOPHAGEAL REFLUX DISEASE
     Dosage: 10 MG
     Route: 048
     Dates: start: 20121203, end: 20121219
  6. MICARDIS [Concomitant]
     Indication: HYPERTENSION
     Dosage: 40 MG
     Route: 048
     Dates: start: 20121202, end: 20121219
  7. ARTIST [Concomitant]
     Indication: HYPERTENSION
     Dosage: 5 MG
     Route: 048
     Dates: start: 20121201, end: 20121219
  8. ALLORIN [Concomitant]
     Indication: HYPERURICAEMIA
     Dosage: 100 MG
     Route: 048
     Dates: start: 20121203, end: 20121219
  9. HALFDIGOXIN [Concomitant]
     Indication: CARDIAC FAILURE CONGESTIVE
     Dosage: 0.125 MG
     Route: 048
     Dates: start: 20121130, end: 20121219
  10. MAGMITT [Concomitant]
     Indication: CONSTIPATION
     Dosage: 1980 MG
     Route: 048
     Dates: start: 20121208, end: 20121219
  11. JANUVIA [Concomitant]
     Indication: DIABETES MELLITUS
     Dosage: 50 MG
     Route: 048
     Dates: start: 20121215, end: 20121219
  12. DIART [Concomitant]
     Indication: CARDIAC FAILURE CONGESTIVE
     Dosage: 30 MG
     Route: 048
     Dates: start: 20121215, end: 20121219
  13. YOULACTONE [Concomitant]
     Indication: CARDIAC FAILURE CONGESTIVE
     Dosage: 25 MG
     Route: 048
     Dates: start: 20121215, end: 20121219

REACTIONS (3)
  - Lower gastrointestinal haemorrhage [Fatal]
  - Lower gastrointestinal haemorrhage [Not Recovered/Not Resolved]
  - Shock [Unknown]
